FAERS Safety Report 25546917 (Version 1)
Quarter: 2025Q3

REPORT INFORMATION
  Report Type: Spontaneous
  Country: GB (occurrence: GB)
  Receive Date: 20250714
  Receipt Date: 20250714
  Transmission Date: 20251020
  Serious: Yes (Other)
  Sender: ALKEM
  Company Number: None

PATIENT
  Age: 27 Year
  Sex: Female

DRUGS (1)
  1. CEFUROXIME AXETIL [Suspect]
     Active Substance: CEFUROXIME AXETIL
     Indication: Surgery
     Route: 065
     Dates: start: 20250107

REACTIONS (7)
  - Rash [Recovered/Resolved]
  - Maternal exposure during pregnancy [Unknown]
  - Hypotension [Unknown]
  - Wheezing [Unknown]
  - Rash [Unknown]
  - Urticaria [Unknown]
  - Erythema [Unknown]

NARRATIVE: CASE EVENT DATE: 20250107
